FAERS Safety Report 20093112 (Version 1)
Quarter: 2021Q4

REPORT INFORMATION
  Report Type: Spontaneous
  Country: US (occurrence: US)
  Receive Date: 20211120
  Receipt Date: 20211120
  Transmission Date: 20220304
  Serious: Yes (Other)
  Sender: FDA-Public Use
  Company Number: US-NOVARTISPH-NVSC2021US262333

PATIENT
  Age: 81 Year
  Sex: Male

DRUGS (17)
  1. DOCETAXEL [Suspect]
     Active Substance: DOCETAXEL
     Indication: Prostate cancer metastatic
     Dosage: UNK (STARTED CHEMOTHERAPY)
     Route: 065
     Dates: start: 20200507
  2. DOCETAXEL [Suspect]
     Active Substance: DOCETAXEL
     Indication: Free prostate-specific antigen
     Dosage: UNK (CYCLE 14) (DOCETAXEL/CARBOPLATIN REGIMEN, DISCONTINUED)
     Route: 065
     Dates: end: 20210423
  3. CARBOPLATIN [Suspect]
     Active Substance: CARBOPLATIN
     Indication: Prostate cancer metastatic
     Dosage: UNK (STARTED CHEMOTHERAPY)
     Route: 065
     Dates: start: 20200507
  4. CARBOPLATIN [Suspect]
     Active Substance: CARBOPLATIN
     Indication: Free prostate-specific antigen
     Dosage: UNK (CYCLE 14) (DOCETAXEL/CARBOPLATIN REGIMEN, DISCONTINUED)
     Route: 065
     Dates: end: 20210423
  5. LEUPROLIDE [Suspect]
     Active Substance: LEUPROLIDE
     Indication: Prostate cancer metastatic
     Dosage: UNK
     Route: 065
  6. LEUPROLIDE [Suspect]
     Active Substance: LEUPROLIDE
     Indication: Free prostate-specific antigen
  7. ABIRATERONE [Suspect]
     Active Substance: ABIRATERONE
     Indication: Prostate cancer metastatic
     Dosage: UNK
     Route: 065
  8. ABIRATERONE [Suspect]
     Active Substance: ABIRATERONE
     Indication: Free prostate-specific antigen
  9. ENZALUTAMIDE [Suspect]
     Active Substance: ENZALUTAMIDE
     Indication: Prostate cancer metastatic
     Dosage: UNK
     Route: 065
  10. ENZALUTAMIDE [Suspect]
     Active Substance: ENZALUTAMIDE
     Indication: Free prostate-specific antigen
  11. PREDNISONE [Suspect]
     Active Substance: PREDNISONE
     Indication: Product used for unknown indication
     Dosage: UNK
     Route: 065
     Dates: start: 201807
  12. PREDNISONE [Suspect]
     Active Substance: PREDNISONE
     Dosage: 10 MG
     Route: 065
  13. PREDNISONE [Suspect]
     Active Substance: PREDNISONE
     Dosage: 5 MG, BID (5MG BID INSTEAD OF 10 MG), IN ADDITION TO ZYTIGA)
     Route: 065
     Dates: start: 201907
  14. ZYTIGA [Suspect]
     Active Substance: ABIRATERONE ACETATE
     Indication: Product used for unknown indication
     Dosage: UNK
     Route: 065
     Dates: start: 201712
  15. ZYTIGA [Suspect]
     Active Substance: ABIRATERONE ACETATE
     Dosage: UNK
     Route: 065
     Dates: start: 201807
  16. ZYTIGA [Suspect]
     Active Substance: ABIRATERONE ACETATE
     Dosage: 1000 MG, QD
     Route: 065
     Dates: start: 201905
  17. ZYTIGA [Suspect]
     Active Substance: ABIRATERONE ACETATE
     Dosage: 750 MG, QD
     Route: 065

REACTIONS (8)
  - Bronchiolitis [Unknown]
  - Metastases to lymph nodes [Unknown]
  - Prostatic specific antigen increased [Not Recovered/Not Resolved]
  - Pain [Unknown]
  - Fatigue [Unknown]
  - Hypertension [Unknown]
  - Chronic obstructive pulmonary disease [Unknown]
  - Lung consolidation [Unknown]

NARRATIVE: CASE EVENT DATE: 20190101
